FAERS Safety Report 7582591-5 (Version None)
Quarter: 2011Q2

REPORT INFORMATION
  Report Type: 
  Country: None (occurrence: None)
  Receive Date: 20110630
  Receipt Date: 20110627
  Transmission Date: 20111010
  Serious: Yes (Hospitalization, Other)
  Sender: FDA-Public Use
  Company Number: US-PFIZER INC-2011086417

PATIENT
  Sex: Female

DRUGS (5)
  1. SEROQUEL [Concomitant]
     Indication: DEPRESSION
     Dosage: UNK
     Dates: start: 20020101
  2. ZESTORETIC [Concomitant]
     Indication: HYPERTENSION
     Dosage: UNK
     Dates: start: 20060101
  3. LABETALOL [Concomitant]
     Indication: HYPERTENSION
     Dosage: UNK
     Dates: start: 20060101
  4. CHANTIX [Suspect]
     Indication: SMOKING CESSATION THERAPY
     Dosage: 0.5 MG
     Dates: start: 20090501, end: 20090517
  5. CYMBALTA [Concomitant]
     Indication: DEPRESSION
     Dosage: UNK
     Dates: start: 20020101

REACTIONS (4)
  - MENTAL DISORDER [None]
  - AGGRESSION [None]
  - DEPRESSION [None]
  - SUICIDE ATTEMPT [None]
